FAERS Safety Report 4650961-0 (Version None)
Quarter: 2005Q2

REPORT INFORMATION
  Report Type: 
  Country: None (occurrence: None)
  Receive Date: 20050503
  Receipt Date: 20050201
  Transmission Date: 20051028
  Serious: Yes (Hospitalization)
  Sender: FDA-Public Use
  Company Number: US-MERCK-0502USA00221

PATIENT
  Age: 68 Year
  Sex: Female

DRUGS (16)
  1. VIOXX [Suspect]
     Indication: OSTEOARTHRITIS
     Route: 048
     Dates: start: 20010301, end: 20021226
  2. VIOXX [Suspect]
     Route: 048
     Dates: start: 20021227, end: 20031029
  3. VIOXX [Suspect]
     Route: 048
     Dates: start: 20040101, end: 20040415
  4. KLOR-CON [Concomitant]
     Route: 065
  5. PRAVACHOL [Concomitant]
     Route: 065
  6. NEURONTIN [Concomitant]
     Route: 065
  7. VICODIN [Concomitant]
     Indication: PAIN
     Route: 065
  8. FOSAMAX [Concomitant]
     Route: 065
  9. CALCIUM (UNSPECIFIED) [Concomitant]
     Route: 065
  10. NEXIUM [Concomitant]
     Route: 065
  11. CARDIZEM [Concomitant]
     Indication: BLOOD PRESSURE
     Route: 065
     Dates: start: 20000101
  12. LASIX [Concomitant]
     Indication: HYPERTENSION
     Route: 065
     Dates: start: 19990101, end: 20050101
  13. ZOCOR [Concomitant]
     Indication: BLOOD CHOLESTEROL INCREASED
     Route: 065
     Dates: start: 20030101, end: 20040101
  14. ESTROGENS (UNSPECIFIED) [Concomitant]
     Indication: HORMONE REPLACEMENT THERAPY
     Route: 065
     Dates: start: 19980101, end: 20040101
  15. IBUPROFEN [Concomitant]
     Route: 065
     Dates: end: 20031029
  16. ZESTRIL [Concomitant]
     Indication: BLOOD PRESSURE
     Route: 065
     Dates: start: 20040210

REACTIONS (28)
  - ABDOMINAL PAIN UPPER [None]
  - AMNESIA [None]
  - ANXIETY [None]
  - BENIGN RENAL NEOPLASM [None]
  - CHEST DISCOMFORT [None]
  - COLITIS ISCHAEMIC [None]
  - CONTUSION [None]
  - DEEP VEIN THROMBOSIS [None]
  - DELIRIUM [None]
  - DIZZINESS [None]
  - DYSPNOEA [None]
  - FALL [None]
  - FATIGUE [None]
  - GASTROINTESTINAL HAEMORRHAGE [None]
  - HERPES ZOSTER [None]
  - MITRAL VALVE INCOMPETENCE [None]
  - MYOCARDIAL INFARCTION [None]
  - PAIN [None]
  - RENAL FAILURE [None]
  - ROTATOR CUFF SYNDROME [None]
  - SACROILIITIS [None]
  - SLEEP APNOEA SYNDROME [None]
  - STAPHYLOCOCCAL INFECTION [None]
  - SUBCLAVIAN VEIN THROMBOSIS [None]
  - TREATMENT NONCOMPLIANCE [None]
  - TRICUSPID VALVE INCOMPETENCE [None]
  - URINARY TRACT INFECTION [None]
  - VENTRICULAR HYPERTROPHY [None]
